FAERS Safety Report 26145305 (Version 1)
Quarter: 2025Q4

REPORT INFORMATION
  Report Type: Report from Study
  Country: US (occurrence: US)
  Receive Date: 20251211
  Receipt Date: 20251211
  Transmission Date: 20260117
  Serious: Yes (Death)
  Sender: BIOGEN
  Company Number: US-BIOGEN-2094628

PATIENT

DRUGS (1)
  1. TYSABRI [Suspect]
     Active Substance: NATALIZUMAB
     Indication: Maternal exposure during pregnancy
     Route: 064

REACTIONS (2)
  - Cytogenetic abnormality [Fatal]
  - Foetal exposure during pregnancy [Recovered/Resolved]

NARRATIVE: CASE EVENT DATE: 20230101
